FAERS Safety Report 7117210-5 (Version None)
Quarter: 2010Q4

REPORT INFORMATION
  Report Type: 
  Country: None (occurrence: None)
  Receive Date: 20101122
  Receipt Date: 20101111
  Transmission Date: 20110411
  Serious: Yes (Other)
  Sender: FDA-Public Use
  Company Number: PHHY2009CA20266

PATIENT
  Sex: Female

DRUGS (2)
  1. SANDOSTATIN LAR [Suspect]
     Indication: CARCINOID TUMOUR
     Dosage: 30 MG EVERY 4 WEEKS
     Route: 030
     Dates: start: 20090601
  2. SANDOSTATIN [Suspect]
     Indication: CARCINOID TUMOUR
     Dosage: 50 UG, UNK
     Route: 058
     Dates: start: 20090521

REACTIONS (15)
  - ALOPECIA [None]
  - BLOOD PRESSURE SYSTOLIC INCREASED [None]
  - BONE PAIN [None]
  - CHILLS [None]
  - COUGH [None]
  - DEEP VEIN THROMBOSIS [None]
  - DEFAECATION URGENCY [None]
  - DEPRESSION [None]
  - DIARRHOEA [None]
  - FAECES DISCOLOURED [None]
  - FLATULENCE [None]
  - MALAISE [None]
  - PAIN IN EXTREMITY [None]
  - PRODUCTIVE COUGH [None]
  - ROAD TRAFFIC ACCIDENT [None]
